FAERS Safety Report 21728006 (Version 1)
Quarter: 2022Q4

REPORT INFORMATION
  Report Type: Spontaneous
  Country: FR (occurrence: FR)
  Receive Date: 20221214
  Receipt Date: 20221214
  Transmission Date: 20230113
  Serious: Yes (Hospitalization, Other)
  Sender: FDA-Public Use
  Company Number: FR-NOVAST LABORATORIES INC.-2022NOV000332

PATIENT
  Age: 24 Year
  Sex: Male

DRUGS (2)
  1. ACETAZOLAMIDE [Suspect]
     Active Substance: ACETAZOLAMIDE
     Indication: Iridocyclitis
     Dosage: UNK
     Route: 048
  2. VALACYCLOVIR [Concomitant]
     Active Substance: VALACYCLOVIR HYDROCHLORIDE
     Indication: Iridocyclitis
     Dosage: 500 MILLIGRAM
     Route: 042

REACTIONS (3)
  - Sickle cell trait [Recovered/Resolved]
  - Retinopathy [Recovered/Resolved]
  - Product use in unapproved indication [Unknown]
